FAERS Safety Report 7997188-2 (Version None)
Quarter: 2011Q4

REPORT INFORMATION
  Report Type: 
  Country: None (occurrence: None)
  Receive Date: 20111221
  Receipt Date: 20111214
  Transmission Date: 20120403
  Serious: Yes (Life-Threatening, Hospitalization, Other)
  Sender: FDA-Public Use
  Company Number: US-CELGENEUS-163-21880-11051931

PATIENT
  Sex: Male

DRUGS (36)
  1. ZOSYN [Concomitant]
     Route: 041
     Dates: start: 20110301, end: 20110301
  2. SODIUM CHLORIDE [Concomitant]
     Indication: CATHETER PLACEMENT
     Dosage: 10 MILLILITER
     Route: 041
  3. CITALOPRAM HYDROBROMIDE [Concomitant]
     Indication: DEPRESSION
     Dosage: ONE-HALF TABLET
     Route: 048
  4. METRONIDAZOLE [Concomitant]
  5. NEPHRO-VITE [Concomitant]
     Dosage: 1 TABLET
     Route: 048
  6. HEPARIN [Concomitant]
     Indication: CATHETER PLACEMENT
     Route: 041
  7. PHYTONADIONE [Concomitant]
     Dosage: 2 TABLET
     Route: 048
  8. OMEPRAZOLE [Concomitant]
     Indication: GASTRITIS PROPHYLAXIS
     Dosage: 1 CAPSULE
     Route: 048
  9. MAGNESIUM SULFATE [Concomitant]
     Dosage: 1GM/100ML
     Route: 041
  10. HYDROCORTISONE [Concomitant]
     Indication: SEPSIS
     Dosage: 100 MILLIGRAM
     Route: 065
  11. REVLIMID [Suspect]
     Dosage: 5 MILLIGRAM
     Route: 048
     Dates: start: 20110614
  12. TERAZOSIN HCL [Concomitant]
     Dosage: 2 MILLIGRAM
     Route: 048
  13. METRONIDAZOLE [Concomitant]
     Dosage: 2 TABLET
     Route: 048
  14. METRONIDAZOLE [Concomitant]
     Indication: SEPSIS
     Dosage: 500 MILLIGRAM
     Route: 041
  15. LEVOTHYROXINE SODIUM [Concomitant]
     Dosage: 1 TABLET
     Route: 048
  16. METOPROLOL TARTRATE [Concomitant]
     Indication: HEART RATE
     Dosage: ONE-HALF TABLET
     Route: 048
  17. EPOETIN ALFA [Concomitant]
     Dosage: 2,000 UNITS
     Route: 058
  18. LACTOBACILLUS [Concomitant]
     Dosage: 1 TABLET
     Route: 048
  19. PROCHLORPERAZINE [Concomitant]
     Indication: NAUSEA
     Dosage: 1 - 2 TABLETS
     Route: 048
  20. ARANESP [Concomitant]
     Indication: FULL BLOOD COUNT DECREASED
     Dosage: 50 MICROGRAM
     Route: 058
     Dates: start: 20110707
  21. REVLIMID [Suspect]
     Indication: MULTIPLE MYELOMA
     Dosage: 10 MILLIGRAM
     Route: 048
     Dates: start: 20110317, end: 20110411
  22. PREDNISONE [Concomitant]
     Indication: ADRENAL INSUFFICIENCY
     Dosage: 1 TABLET
     Route: 048
  23. BLOOD TRANSFUSION [Concomitant]
     Route: 065
  24. TERAZOSIN HCL [Concomitant]
     Indication: HYPOTENSION
     Route: 065
  25. EPOETIN ALFA [Concomitant]
     Indication: FULL BLOOD COUNT DECREASED
     Route: 058
     Dates: start: 20110425, end: 20110630
  26. ALLOPURINOL [Concomitant]
     Dosage: ONE-HALF TABLET
     Route: 048
  27. MAGNESIUM OXIDE [Concomitant]
     Dosage: 2 TABLET
     Route: 048
  28. HYDROMORPHONE HCL [Concomitant]
     Dosage: 2 MILLIGRAM
     Route: 041
  29. TERBINAFINE HCL [Concomitant]
     Dosage: MODERATE AMOUNT
     Route: 061
  30. TAMSULOSIN HCL [Concomitant]
     Route: 048
  31. METOPROLOL TARTRATE [Concomitant]
     Indication: BLOOD PRESSURE
  32. EPOETIN ALFA [Concomitant]
     Dosage: 3,000 UNITS
     Route: 058
  33. ALLOPURINOL [Concomitant]
     Dosage: 2 TABLET
     Route: 048
  34. AMLODIPINE BESYLATE [Concomitant]
     Indication: HYPERTENSION
     Dosage: ONE-HALF TABLET
     Route: 048
  35. DEXAMETHASONE [Concomitant]
     Dosage: 5 TABLET
     Route: 048
  36. LEVOTHYROXINE SODIUM [Concomitant]
     Indication: THYROID DISORDER
     Dosage: 1 TABLET
     Route: 048

REACTIONS (7)
  - WHITE BLOOD CELL COUNT DECREASED [None]
  - THROMBOCYTOPENIA [None]
  - RENAL FAILURE CHRONIC [None]
  - NEUTROPENIA [None]
  - ANAEMIA [None]
  - DIARRHOEA [None]
  - BACTERAEMIA [None]
